FAERS Safety Report 11287112 (Version 1)
Quarter: 2015Q3

REPORT INFORMATION
  Report Type: Spontaneous
  Country: US (occurrence: US)
  Receive Date: 20150721
  Receipt Date: 20150721
  Transmission Date: 20151125
  Serious: No
  Sender: FDA-Public Use
  Company Number: US-UNITED THERAPEUTICS-UNT-2014-012551

PATIENT
  Age: 37 Year
  Sex: Male
  Weight: 108.84 kg

DRUGS (15)
  1. ORENITRAM [Suspect]
     Active Substance: TREPROSTINIL
     Dosage: 2.25 MG, Q8H
     Route: 048
     Dates: start: 20141128
  2. ORENITRAM [Suspect]
     Active Substance: TREPROSTINIL
     Dosage: UNK
     Route: 048
  3. ORENITRAM [Suspect]
     Active Substance: TREPROSTINIL
     Dosage: 4 MG, TID
     Route: 048
     Dates: start: 20141125
  4. ADCIRCA [Concomitant]
     Active Substance: TADALAFIL
     Indication: PRODUCT USED FOR UNKNOWN INDICATION
  5. ADEMPAS [Concomitant]
     Active Substance: RIOCIGUAT
     Indication: PRODUCT USED FOR UNKNOWN INDICATION
  6. ORENITRAM [Suspect]
     Active Substance: TREPROSTINIL
     Dosage: 2 MG, Q8H
     Route: 048
     Dates: start: 20141128
  7. ORENITRAM [Suspect]
     Active Substance: TREPROSTINIL
     Dosage: 2.5 MG, UNK
     Route: 048
  8. ORENITRAM [Suspect]
     Active Substance: TREPROSTINIL
     Dosage: 1.25 MG, TID
     Route: 048
     Dates: start: 20141128
  9. REVATIO [Concomitant]
     Active Substance: SILDENAFIL CITRATE
     Indication: PRODUCT USED FOR UNKNOWN INDICATION
  10. ORENITRAM [Suspect]
     Active Substance: TREPROSTINIL
     Indication: PULMONARY ARTERIAL HYPERTENSION
     Dosage: 3.125 MG, TID
     Route: 048
     Dates: start: 20141106
  11. ORENITRAM [Suspect]
     Active Substance: TREPROSTINIL
     Dosage: 1 MG, BID
     Route: 048
     Dates: start: 20141128
  12. ORENITRAM [Suspect]
     Active Substance: TREPROSTINIL
     Dosage: 3 MG, Q8H
     Route: 048
     Dates: start: 20141128
  13. COUMADIN [Concomitant]
     Active Substance: WARFARIN SODIUM
     Indication: PRODUCT USED FOR UNKNOWN INDICATION
  14. ORENITRAM [Suspect]
     Active Substance: TREPROSTINIL
     Dosage: UNK
     Route: 048
  15. LETAIRIS [Suspect]
     Active Substance: AMBRISENTAN
     Indication: PRODUCT USED FOR UNKNOWN INDICATION
     Dosage: 5 MG, QD
     Route: 065
     Dates: start: 20140220

REACTIONS (11)
  - Dyspepsia [Unknown]
  - Neck pain [Unknown]
  - Pulmonary arterial hypertension [Not Recovered/Not Resolved]
  - Surgery [Unknown]
  - Oxygen saturation decreased [Unknown]
  - Abdominal discomfort [Not Recovered/Not Resolved]
  - Diarrhoea [Unknown]
  - Dizziness [Unknown]
  - Nausea [Unknown]
  - Pain in extremity [Unknown]
  - Headache [Unknown]

NARRATIVE: CASE EVENT DATE: 201412
